FAERS Safety Report 7418790-2 (Version None)
Quarter: 2011Q2

REPORT INFORMATION
  Report Type: 
  Country: None (occurrence: None)
  Receive Date: 20110407
  Receipt Date: 20110325
  Transmission Date: 20111010
  Serious: Yes (Other)
  Sender: FDA-Public Use
  Company Number: 2011SP013858

PATIENT
  Sex: Male

DRUGS (1)
  1. DULERA TABLET [Suspect]
     Indication: ASTHMA

REACTIONS (1)
  - BLOOD PRESSURE INCREASED [None]
